FAERS Safety Report 6802013-9 (Version None)
Quarter: 2010Q2

REPORT INFORMATION
  Report Type: 
  Country: None (occurrence: None)
  Receive Date: 20100629
  Receipt Date: 20071212
  Transmission Date: 20101027
  Serious: Yes (Hospitalization)
  Sender: FDA-Public Use
  Company Number: US-PFIZER INC-2007054951

PATIENT
  Sex: Male

DRUGS (5)
  1. BEXTRA [Suspect]
     Indication: PAIN
     Dates: start: 20041029, end: 20041029
  2. VIOXX [Suspect]
     Indication: PAIN
     Dates: start: 20031013, end: 20040807
  3. HYDROCODONE [Concomitant]
     Dates: start: 20030902
  4. PROPOXYPHENE [Concomitant]
     Dates: start: 20031206
  5. KETOROLAC TROMETHAMINE [Concomitant]
     Dates: start: 20040108, end: 20040426

REACTIONS (1)
  - MYOCARDIAL INFARCTION [None]
